FAERS Safety Report 20452712 (Version 2)
Quarter: 2022Q1

REPORT INFORMATION
  Report Type: Report from Study
  Country: MX (occurrence: MX)
  Receive Date: 20220210
  Receipt Date: 20220211
  Transmission Date: 20220423
  Serious: Yes (Other)
  Sender: FDA-Public Use
  Company Number: MX-UCBSA-2022004852

PATIENT
  Sex: Female
  Weight: 78 kg

DRUGS (5)
  1. ROTIGOTINE [Suspect]
     Active Substance: ROTIGOTINE
     Indication: Parkinson^s disease
     Dosage: UNK (TREATMENT WAS FOR A WEEK)
     Route: 062
  2. ROTIGOTINE [Suspect]
     Active Substance: ROTIGOTINE
     Dosage: UNK (TREATMENT WAS FOR THREE DAYS)
     Route: 062
  3. BIPERIDEN [Concomitant]
     Active Substance: BIPERIDEN
     Indication: Tremor
  4. GABAPENTIN [Concomitant]
     Active Substance: GABAPENTIN
     Indication: Pain
  5. LEVODOPA [Concomitant]
     Active Substance: LEVODOPA
     Indication: Product used for unknown indication

REACTIONS (6)
  - Hallucination, visual [Recovering/Resolving]
  - Gastritis [Unknown]
  - Feeling abnormal [Recovering/Resolving]
  - Insomnia [Recovering/Resolving]
  - Movement disorder [Unknown]
  - Product adhesion issue [Unknown]
